FAERS Safety Report 21903165 (Version 1)
Quarter: 2023Q1

REPORT INFORMATION
  Report Type: Report from Study
  Country: DE (occurrence: DE)
  Receive Date: 20230124
  Receipt Date: 20230124
  Transmission Date: 20230417
  Serious: Yes (Other)
  Sender: FDA-Public Use
  Company Number: DE-MYLANLABS-2023M1006613

PATIENT
  Age: 180 Day
  Sex: Female
  Weight: 5.2 kg

DRUGS (2)
  1. DEXMEDETOMIDINE [Suspect]
     Active Substance: DEXMEDETOMIDINE
     Indication: Sedative therapy
     Dosage: 1.5 MICROGRAM/KILOGRAM (INTRAVENOUS BOLUS)
     Route: 042
  2. DEXMEDETOMIDINE [Suspect]
     Active Substance: DEXMEDETOMIDINE
     Dosage: 1.3 MICROGRAM/KILOGRAM, QH (INTRAVENOUS INFUSION)
     Route: 042

REACTIONS (2)
  - Bradycardia [Recovered/Resolved]
  - Off label use [Unknown]
